FAERS Safety Report 5074890-6 (Version None)
Quarter: 2006Q3

REPORT INFORMATION
  Report Type: 
  Country: None (occurrence: None)
  Receive Date: 20060717
  Receipt Date: 20051115
  Transmission Date: 20061208
  Serious: No
  Sender: FDA-Public Use
  Company Number: 2005002229

PATIENT
  Age: 69 Year
  Sex: Female
  Weight: 102.5129 kg

DRUGS (1)
  1. TARCEVA [Suspect]
     Indication: NON-SMALL CELL LUNG CANCER
     Dosage: 150 MG (QD), ORAL
     Route: 048
     Dates: start: 20051024

REACTIONS (3)
  - CHAPPED LIPS [None]
  - CONJUNCTIVITIS [None]
  - RASH [None]
